FAERS Safety Report 5728086-2 (Version None)
Quarter: 2008Q2

REPORT INFORMATION
  Report Type: 
  Country: None (occurrence: None)
  Receive Date: 20080505
  Receipt Date: 20080423
  Transmission Date: 20081010
  Serious: Yes (Disabling, Other)
  Sender: FDA-Public Use
  Company Number: GB-PFIZER INC-2008036953

PATIENT
  Age: 78 Year
  Sex: Female
  Weight: 71 kg

DRUGS (5)
  1. GABAPENTIN [Suspect]
     Indication: PALINDROMIC RHEUMATISM
     Route: 048
     Dates: start: 20070709, end: 20071015
  2. ALENDRONATE SODIUM [Concomitant]
     Route: 048
  3. PREDNISOLONE [Concomitant]
     Route: 048
  4. RANITIDINE [Concomitant]
     Route: 048
  5. LEVOTHYROXINE SODIUM [Concomitant]
     Route: 048

REACTIONS (2)
  - CHORIORETINAL ATROPHY [None]
  - VISION BLURRED [None]
